FAERS Safety Report 8476506 (Version 3)
Quarter: 2013Q2

REPORT INFORMATION
  Report Type: Spontaneous
  Country: HU (occurrence: HU)
  Receive Date: 20120326
  Receipt Date: 20130412
  Transmission Date: 20140414
  Serious: Yes (Other)
  Sender: FDA-Public Use
  Company Number: HU-PFIZER INC-2012073433

PATIENT
  Age: 54 Year
  Sex: Female
  Weight: 90 kg

DRUGS (17)
  1. XALATAN [Suspect]
     Indication: GLAUCOMA
     Dosage: 1 GTT, 1X/DAY
     Dates: start: 201208
  2. COSOPT [Concomitant]
     Dosage: UNK
  3. HUMACARPIN [Concomitant]
     Dosage: UNK
  4. INSUMAN BASAL [Concomitant]
     Dosage: UNK
  5. INSUMAN RAPID [Concomitant]
     Dosage: UNK
  6. DICYNONE [Concomitant]
     Dosage: UNK
  7. DOXILEK [Concomitant]
     Dosage: UNK
  8. DIAPHYLLIN [Concomitant]
     Dosage: UNK
  9. MONOMACK [Concomitant]
     Dosage: UNK
  10. NEBACOP [Concomitant]
     Dosage: UNK
  11. PRELOW [Concomitant]
     Dosage: UNK
  12. DOXAZOSIN [Concomitant]
     Dosage: UNK
  13. NITROMINT [Concomitant]
     Dosage: UNK
  14. ATORIS [Concomitant]
     Dosage: UNK
  15. ALPRAZOLAM [Concomitant]
     Dosage: UNK
  16. NEO-FERRO FOLGAMMA [Concomitant]
     Dosage: UNK
  17. FRONTIN [Concomitant]
     Dosage: UNK

REACTIONS (4)
  - Visual acuity reduced [Not Recovered/Not Resolved]
  - Drug ineffective [Not Recovered/Not Resolved]
  - Eye pain [Not Recovered/Not Resolved]
  - Ocular hyperaemia [Not Recovered/Not Resolved]
